FAERS Safety Report 5401820-7 (Version None)
Quarter: 2007Q3

REPORT INFORMATION
  Report Type: 
  Country: None (occurrence: None)
  Receive Date: 20070731
  Receipt Date: 20070720
  Transmission Date: 20080115
  Serious: Yes (Hospitalization, Other)
  Sender: FDA-Public Use
  Company Number: US-AMGEN-US233882

PATIENT
  Sex: Female

DRUGS (9)
  1. ENBREL [Suspect]
     Indication: PSORIATIC ARTHROPATHY
     Route: 058
     Dates: start: 20051101, end: 20070109
  2. HUMIRA [Suspect]
     Route: 058
     Dates: start: 20060301, end: 20060301
  3. ARAVA [Suspect]
     Route: 065
     Dates: start: 20060401, end: 20060401
  4. CLOBETASOL PROPIONATE [Concomitant]
     Route: 061
  5. DESONIDE [Concomitant]
     Route: 061
  6. NEXIUM [Concomitant]
     Route: 065
  7. DICYCLOMINE HYDROCHLORIDE [Concomitant]
     Route: 065
  8. FENTANYL [Concomitant]
     Route: 062
  9. SOMA [Concomitant]
     Route: 065

REACTIONS (5)
  - DRUG RASH WITH EOSINOPHILIA AND SYSTEMIC SYMPTOMS [None]
  - MULTIPLE SCLEROSIS [None]
  - NEUROLOGICAL SYMPTOM [None]
  - PSORIATIC ARTHROPATHY [None]
  - UTERINE LEIOMYOMA [None]
